FAERS Safety Report 9789257 (Version 1)
Quarter: 2013Q4

REPORT INFORMATION
  Report Type: Spontaneous
  Country: JP (occurrence: JP)
  Receive Date: 20131230
  Receipt Date: 20131230
  Transmission Date: 20140711
  Serious: Yes (Life-Threatening)
  Sender: FDA-Public Use
  Company Number: JP-SANTEN INC.-INC-13-000302

PATIENT
  Age: 38 Year
  Sex: Male

DRUGS (3)
  1. CRAVIT (LEVOFLOXACIN 0.5%) [Suspect]
     Indication: CONJUNCTIVITIS ALLERGIC
     Route: 061
     Dates: start: 20131117, end: 20131117
  2. ADRENALIN [Concomitant]
     Route: 030
     Dates: start: 20131117, end: 20131117
  3. SOLU - CORTEF [Concomitant]
     Route: 042
     Dates: start: 20131117, end: 20131117

REACTIONS (1)
  - Anaphylactic reaction [Recovered/Resolved]
